FAERS Safety Report 17903517 (Version 1)
Quarter: 2020Q2

REPORT INFORMATION
  Report Type: Spontaneous
  Country: CZ (occurrence: CZ)
  Receive Date: 20200616
  Receipt Date: 20200616
  Transmission Date: 20200714
  Serious: Yes (Disabling, Other)
  Sender: FDA-Public Use
  Company Number: CZ-SA-2020SA154804

PATIENT

DRUGS (3)
  1. TAMALIS [Concomitant]
     Route: 065
  2. DETRALEX [Concomitant]
     Active Substance: DIOSMIN\HESPERIDIN
     Route: 065
  3. TAMSULOSIN HYDROCHLORIDE. [Suspect]
     Active Substance: TAMSULOSIN HYDROCHLORIDE
     Indication: PROSTATOMEGALY
     Dosage: 0.4 MG, QD
     Route: 065
     Dates: start: 2020, end: 2020

REACTIONS (3)
  - Testicular pain [Not Recovered/Not Resolved]
  - Dizziness [Recovered/Resolved]
  - Ejaculation disorder [Recovered/Resolved]

NARRATIVE: CASE EVENT DATE: 2020
